FAERS Safety Report 7089190-2 (Version None)
Quarter: 2010Q4

REPORT INFORMATION
  Report Type: 
  Country: None (occurrence: None)
  Receive Date: 20101108
  Receipt Date: 20101104
  Transmission Date: 20110411
  Serious: Yes (Hospitalization)
  Sender: FDA-Public Use
  Company Number: CH-BRISTOL-MYERS SQUIBB COMPANY-15359870

PATIENT
  Age: 71 Year
  Sex: Female

DRUGS (13)
  1. CETUXIMAB [Suspect]
     Indication: OESOPHAGEAL CARCINOMA
     Dosage: REC INF ON 11OCT2010
     Route: 042
     Dates: start: 20100803
  2. CISPLATIN [Suspect]
     Indication: OESOPHAGEAL CARCINOMA
     Dosage: REC INF ON 11OCT2010
     Route: 042
     Dates: start: 20100803
  3. TAXOTERE [Suspect]
     Indication: OESOPHAGEAL CARCINOMA
     Dosage: REC INF ON 11OCT2010
     Route: 042
     Dates: start: 20100803
  4. ASPIRIN [Concomitant]
     Route: 048
  5. RAMIPRIL [Concomitant]
     Route: 048
  6. SIMCORA [Concomitant]
     Route: 048
  7. MOTILIUM [Concomitant]
  8. PANTOPRAZOLE SODIUM [Concomitant]
  9. CALCIMAGON-D3 [Concomitant]
  10. NOVALGIN [Concomitant]
  11. DAFALGAN [Concomitant]
  12. CELEBREX [Concomitant]
  13. CALCIUM CARBONATE [Concomitant]
     Dosage: CALCIUM SANDOS D3
     Route: 048

REACTIONS (1)
  - PULMONARY EMBOLISM [None]
